FAERS Safety Report 4607993-8 (Version None)
Quarter: 2005Q2

REPORT INFORMATION
  Report Type: 
  Country: None (occurrence: None)
  Receive Date: 20050303
  Receipt Date: 20041215
  Transmission Date: 20051028
  Serious: No
  Sender: FDA-Public Use
  Company Number: 211175

PATIENT
  Age: 59 Year
  Sex: Male
  Weight: 86 kg

DRUGS (6)
  1. XOLAIR [Suspect]
     Indication: DRUG USE FOR UNKNOWN INDICATION
     Dosage: 375 MG SUBCUTANEOUS
     Route: 058
     Dates: start: 20041206, end: 20041206
  2. NORVASC [Concomitant]
  3. ADVAIR (SALMETEROL XINAFOATE FLUTICASONE PROPIONATE) [Concomitant]
  4. ZYRTEC [Concomitant]
  5. NASACORT [Concomitant]
  6. NEXIUM [Concomitant]

REACTIONS (1)
  - EYELID OEDEMA [None]
